FAERS Safety Report 9520550 (Version 1)
Quarter: 2013Q3

REPORT INFORMATION
  Report Type: Spontaneous
  Country: US (occurrence: US)
  Receive Date: 20130913
  Receipt Date: 20130913
  Transmission Date: 20140515
  Serious: Yes (Hospitalization)
  Sender: FDA-Public Use
  Company Number: US-BIOGENIDEC-2013BI084518

PATIENT
  Age: 58 Year
  Sex: Female

DRUGS (1)
  1. TECFIDERA [Suspect]
     Indication: MULTIPLE SCLEROSIS
     Route: 048
     Dates: start: 201308, end: 20130824

REACTIONS (5)
  - Myocardial infarction [Unknown]
  - Hypertension [Unknown]
  - Hypoaesthesia [Unknown]
  - Abdominal distension [Unknown]
  - Paraesthesia [Unknown]
